FAERS Safety Report 6615585-4 (Version None)
Quarter: 2010Q1

REPORT INFORMATION
  Report Type: 
  Country: None (occurrence: None)
  Receive Date: 20100305
  Receipt Date: 20100223
  Transmission Date: 20100710
  Serious: Yes (Hospitalization)
  Sender: FDA-Public Use
  Company Number: CN-ROCHE-687078

PATIENT
  Sex: Female

DRUGS (3)
  1. TAMIFLU [Suspect]
     Dosage: SECOND INDICATION: URTICARIA
     Route: 048
  2. CLARITIN [Concomitant]
     Indication: URTICARIA
  3. UNSPECIFIED DRUG [Concomitant]
     Dosage: DRUG NAME REPORTED AS ANTIFEBRILE

REACTIONS (2)
  - ASTHMA [None]
  - PNEUMONIA [None]
